FAERS Safety Report 13276772 (Version 1)
Quarter: 2017Q1

REPORT INFORMATION
  Report Type: Spontaneous
  Country: BR (occurrence: BR)
  Receive Date: 20170228
  Receipt Date: 20170228
  Transmission Date: 20170428
  Serious: Yes (Disabling)
  Sender: FDA-Public Use
  Company Number: BR-EMD SERONO-8144993

PATIENT
  Age: 51 Year
  Sex: Female

DRUGS (1)
  1. REBIF [Suspect]
     Active Substance: INTERFERON BETA-1A
     Indication: PRODUCT USED FOR UNKNOWN INDICATION

REACTIONS (7)
  - Pain in extremity [Unknown]
  - Musculoskeletal stiffness [Unknown]
  - Bedridden [Unknown]
  - Chills [Unknown]
  - Pyrexia [Unknown]
  - Neck pain [Unknown]
  - Headache [Unknown]
